FAERS Safety Report 15606225 (Version 2)
Quarter: 2018Q4

REPORT INFORMATION
  Report Type: Spontaneous
  Country: IT (occurrence: IT)
  Receive Date: 20181112
  Receipt Date: 20181122
  Transmission Date: 20190205
  Serious: Yes (Hospitalization, Other)
  Sender: FDA-Public Use
  Company Number: IT-AUROBINDO-AUR-APL-2017-05909

PATIENT
  Age: 33 Year
  Sex: Male

DRUGS (5)
  1. PARACETAMOL [Suspect]
     Active Substance: ACETAMINOPHEN
     Indication: INFLUENZA LIKE ILLNESS
     Dosage: 4 G, OVER 72 HOURS
     Route: 065
  2. CLONAZEPAM. [Concomitant]
     Active Substance: CLONAZEPAM
     Indication: PRODUCT USED FOR UNKNOWN INDICATION
     Dosage: 2 MILLIGRAM, DAILY
     Route: 065
  3. GABAPENTIN. [Concomitant]
     Active Substance: GABAPENTIN
     Indication: PRODUCT USED FOR UNKNOWN INDICATION
     Dosage: 300 MILLIGRAM, DAILY
     Route: 065
  4. BUPRENORPHINE HYDROCHLORIDE. [Suspect]
     Active Substance: BUPRENORPHINE HYDROCHLORIDE
     Indication: PRODUCT USED FOR UNKNOWN INDICATION
     Dosage: 20 MILLIGRAM, DAILY
     Route: 060
  5. METHADONE [Suspect]
     Active Substance: METHADONE HYDROCHLORIDE
     Indication: DETOXIFICATION
     Dosage: UNK
     Route: 016

REACTIONS (15)
  - Hepatitis acute [Recovered/Resolved]
  - Acute hepatic failure [Recovered/Resolved]
  - Anuria [Recovered/Resolved]
  - Alanine aminotransferase increased [Recovered/Resolved]
  - Influenza like illness [Recovered/Resolved]
  - Drug level increased [Recovered/Resolved]
  - Hepatic encephalopathy [Recovered/Resolved]
  - Hepatic steatosis [Recovered/Resolved with Sequelae]
  - Hepatic function abnormal [Recovered/Resolved]
  - Renal failure [Recovered/Resolved]
  - Prothrombin time prolonged [Recovered/Resolved]
  - Drug-induced liver injury [Recovered/Resolved]
  - Cholestasis [Recovered/Resolved with Sequelae]
  - Drug ineffective [Unknown]
  - Jaundice [Recovered/Resolved]
